FAERS Safety Report 17615701 (Version 1)
Quarter: 2020Q1

REPORT INFORMATION
  Report Type: Spontaneous
  Country: US (occurrence: US)
  Receive Date: 20200330
  Receipt Date: 20200330
  Transmission Date: 20200409
  Serious: Yes (Other)
  Sender: FDA-Public Use
  Company Number: None

PATIENT
  Age: 24 Year

DRUGS (1)
  1. VIVELLE-DOT [Suspect]
     Active Substance: ESTRADIOL
     Indication: GENDER DYSPHORIA
     Dosage: ?          OTHER FREQUENCY:BIWEEKLY;??
     Route: 062
     Dates: start: 20200316

REACTIONS (3)
  - Rash pruritic [None]
  - Application site swelling [None]
  - Application site discomfort [None]

NARRATIVE: CASE EVENT DATE: 20200222
